FAERS Safety Report 6747797-3 (Version None)
Quarter: 2010Q2

REPORT INFORMATION
  Report Type: 
  Country: None (occurrence: None)
  Receive Date: 20100528
  Receipt Date: 20100519
  Transmission Date: 20101027
  Serious: Yes (Other)
  Sender: FDA-Public Use
  Company Number: JP-PFIZER INC-2010053668

PATIENT
  Age: 92 Year
  Sex: Male

DRUGS (3)
  1. DETRUSITOL [Suspect]
     Dosage: UNK
     Dates: start: 20090204, end: 20090529
  2. LEUPLIN [Concomitant]
     Dosage: UNK
  3. PROSTAL [Concomitant]
     Dosage: UNK

REACTIONS (1)
  - SCROTAL ULCER [None]
